FAERS Safety Report 9070991 (Version 1)
Quarter: 2013Q1

REPORT INFORMATION
  Report Type: Spontaneous
  Country: FR (occurrence: FR)
  Receive Date: 20130129
  Receipt Date: 20130129
  Transmission Date: 20140127
  Serious: Yes (Other)
  Sender: FDA-Public Use
  Company Number: FR-GLAXOSMITHKLINE-B0861417A

PATIENT
  Age: 81 Year
  Sex: Male

DRUGS (1)
  1. AVODART [Suspect]
     Indication: BENIGN PROSTATIC HYPERPLASIA
     Dosage: .5MG PER DAY
     Route: 048
     Dates: start: 20130107, end: 20130118

REACTIONS (3)
  - Nocturia [Not Recovered/Not Resolved]
  - Eye pain [Not Recovered/Not Resolved]
  - Epistaxis [Not Recovered/Not Resolved]
